FAERS Safety Report 9697448 (Version 1)
Quarter: 2013Q4

REPORT INFORMATION
  Report Type: Spontaneous
  Country: US (occurrence: None)
  Receive Date: 20131119
  Receipt Date: 20131119
  Transmission Date: 20140711
  Serious: No
  Sender: FDA-Public Use
  Company Number: None

PATIENT
  Age: 60 Year
  Sex: Male
  Weight: 63.5 kg

DRUGS (2)
  1. COSOPT [Suspect]
     Indication: GLAUCOMA
     Dosage: TWICE DAILY INTO THE EYE
     Route: 047
     Dates: start: 20070101
  2. TIMOLOL [Suspect]
     Indication: GLAUCOMA
     Dosage: ONCE DAILY INTO THE EYE
     Route: 047

REACTIONS (2)
  - Tinnitus [None]
  - Sleep disorder [None]
